FAERS Safety Report 10627085 (Version 1)
Quarter: 2014Q4

REPORT INFORMATION
  Report Type: Spontaneous
  Country: US (occurrence: US)
  Receive Date: 20141204
  Receipt Date: 20141204
  Transmission Date: 20150529
  Serious: No
  Sender: FDA-Public Use
  Company Number: US-PFIZER INC-2014332502

PATIENT
  Sex: Male

DRUGS (1)
  1. LYRICA [Suspect]
     Active Substance: PREGABALIN
     Dosage: UNK

REACTIONS (7)
  - Agitation [Unknown]
  - Depression [Unknown]
  - Anxiety [Unknown]
  - Restlessness [Unknown]
  - Insomnia [Unknown]
  - Panic attack [Unknown]
  - Irritability [Unknown]
